FAERS Safety Report 13305762 (Version 1)
Quarter: 2017Q1

REPORT INFORMATION
  Report Type: Spontaneous
  Country: US (occurrence: US)
  Receive Date: 20170308
  Receipt Date: 20170308
  Transmission Date: 20170428
  Serious: Yes (Disabling)
  Sender: FDA-Public Use
  Company Number: None

PATIENT
  Age: 35 Year
  Sex: Female
  Weight: 51 kg

DRUGS (5)
  1. DEPO-PROVERA [Suspect]
     Active Substance: MEDROXYPROGESTERONE ACETATE
     Indication: CONTRACEPTION
     Dosage: QUANTITY:2 INJECTION(S);?
     Route: 030
  2. PRIMROSE OIL [Concomitant]
  3. PROPONANOLOL [Concomitant]
  4. DIAZIPAM [Concomitant]
  5. MULTIVITAMIN [Concomitant]
     Active Substance: VITAMINS

REACTIONS (5)
  - Abortion spontaneous [None]
  - Depression [None]
  - Maternal exposure before pregnancy [None]
  - Adverse drug reaction [None]
  - Suicidal ideation [None]

NARRATIVE: CASE EVENT DATE: 20160526
